FAERS Safety Report 11393477 (Version 4)
Quarter: 2020Q1

REPORT INFORMATION
  Report Type: Spontaneous
  Country: BR (occurrence: BR)
  Receive Date: 20150818
  Receipt Date: 20200306
  Transmission Date: 20200409
  Serious: Yes (Hospitalization, Other)
  Sender: FDA-Public Use
  Company Number: BR-AMGEN-BRASP2015043864

PATIENT
  Age: 8 Year
  Sex: Male
  Weight: 27 kg

DRUGS (6)
  1. ENBREL [Suspect]
     Active Substance: ETANERCEPT
     Dosage: 25 MG, 1X/WEEK (ALWAYS ON FRIDAY)
     Route: 058
     Dates: start: 2015, end: 2018
  2. ENBREL [Suspect]
     Active Substance: ETANERCEPT
     Indication: JUVENILE IDIOPATHIC ARTHRITIS
     Dosage: 25 MILLIGRAM, QWK
     Route: 058
     Dates: start: 201503
  3. METHOTREXATE. [Concomitant]
     Active Substance: METHOTREXATE
     Dosage: 17.5 MG(7 TABLETS), 1X/WEEK
     Route: 048
  4. NAPROXEN. [Concomitant]
     Active Substance: NAPROXEN
     Dosage: 250 MG (1 TABLET), EVERY 12 HOURS
     Route: 048
  5. METHOTREXATE. [Concomitant]
     Active Substance: METHOTREXATE
     Dosage: 17.5 MILLIGRAM, QWK
     Route: 048
  6. NAPROXEN. [Concomitant]
     Active Substance: NAPROXEN
     Dosage: 250 MILLIGRAM, BID
     Route: 048

REACTIONS (14)
  - Oedema peripheral [Unknown]
  - Hypersensitivity [Unknown]
  - Injection site erythema [Unknown]
  - Erythema [Unknown]
  - Pain in extremity [Unknown]
  - Injection site oedema [Unknown]
  - Cellulitis [Unknown]
  - Thrombocytopenia [Unknown]
  - Injection site eczema [Unknown]
  - Skin lesion [Unknown]
  - Injection site injury [Unknown]
  - Injection site pain [Unknown]
  - Lymphangitis [Unknown]
  - Injection site warmth [Unknown]

NARRATIVE: CASE EVENT DATE: 2015
